FAERS Safety Report 24208199 (Version 1)
Quarter: 2024Q3

REPORT INFORMATION
  Report Type: Spontaneous
  Country: CN (occurrence: CN)
  Receive Date: 20240814
  Receipt Date: 20240814
  Transmission Date: 20241017
  Serious: Yes (Other)
  Sender: ROCHE
  Company Number: CN-ROCHE-10000049457

PATIENT
  Age: 52 Year
  Sex: Female

DRUGS (7)
  1. BEVACIZUMAB [Suspect]
     Active Substance: BEVACIZUMAB
     Indication: Lung adenocarcinoma
     Dosage: SINGLE CYCLE OF CHEMOTHERAPY
     Route: 065
     Dates: start: 20220209
  2. PEMETREXED [Suspect]
     Active Substance: PEMETREXED
     Indication: Lung adenocarcinoma
     Route: 065
  3. CARBOPLATIN [Concomitant]
     Active Substance: CARBOPLATIN
     Dosage: SINGLE CYCLE OF CHEMOTHERAPY
     Dates: start: 20220209
  4. PACLITAXEL [Concomitant]
     Active Substance: PACLITAXEL
     Dosage: SINGLE CYCLE OF CHEMOTHERAPY
     Dates: start: 20220209
  5. SOTORASIB [Concomitant]
     Active Substance: SOTORASIB
     Dates: start: 20221115
  6. SOTORASIB [Concomitant]
     Active Substance: SOTORASIB
     Dates: start: 20230315
  7. TISLELIZUMAB [Concomitant]
     Active Substance: TISLELIZUMAB

REACTIONS (3)
  - Metastases to bone [Unknown]
  - Metastases to pelvis [Recovered/Resolved]
  - Disease progression [Recovering/Resolving]

NARRATIVE: CASE EVENT DATE: 20220718
